FAERS Safety Report 6551689-2 (Version None)
Quarter: 2010Q1

REPORT INFORMATION
  Report Type: 
  Country: None (occurrence: None)
  Receive Date: 20100126
  Receipt Date: 20100113
  Transmission Date: 20100710
  Serious: Yes (Hospitalization, Other)
  Sender: FDA-Public Use
  Company Number: PHHY2010US01916

PATIENT
  Sex: Female

DRUGS (17)
  1. DIOVAN [Suspect]
     Indication: BLOOD PRESSURE
     Dosage: 80 MG
  2. DIOVAN [Suspect]
     Dosage: 160 MG
  3. ALPRAZOLAM [Concomitant]
  4. FELODIPINE [Concomitant]
  5. ASPIRIN [Concomitant]
  6. SIMVASTATIN [Concomitant]
  7. CLONAZEPAM [Concomitant]
  8. IRON [Concomitant]
  9. ARIMIDEX [Concomitant]
  10. LABETALOL HCL [Concomitant]
  11. OXYBUTYNIN [Concomitant]
  12. ADVAIR [Concomitant]
  13. SPIRIVA [Concomitant]
  14. BACLOFEN [Concomitant]
  15. HYDROCODONE [Concomitant]
  16. CITALOPRAM [Concomitant]
  17. CENTRUM SILVER [Concomitant]

REACTIONS (7)
  - ANXIETY [None]
  - BLOOD PRESSURE FLUCTUATION [None]
  - CEREBROVASCULAR ACCIDENT [None]
  - DIABETES MELLITUS [None]
  - HEADACHE [None]
  - INFECTION [None]
  - PAIN IN EXTREMITY [None]
